FAERS Safety Report 9224678 (Version 1)
Quarter: 2013Q2

REPORT INFORMATION
  Report Type: Spontaneous
  Country: US (occurrence: None)
  Receive Date: 20130409
  Receipt Date: 20130409
  Transmission Date: 20140414
  Serious: Yes (Hospitalization, Other)
  Sender: FDA-Public Use
  Company Number: 2013P1004463

PATIENT
  Age: 80 Year
  Sex: Female

DRUGS (1)
  1. AMIODARONE [Suspect]
     Indication: ATRIAL FIBRILLATION

REACTIONS (4)
  - Dizziness [None]
  - Hypovolaemia [None]
  - Electrocardiogram QT prolonged [None]
  - Electrocardiogram U-wave abnormality [None]
